FAERS Safety Report 12052783 (Version 2)
Quarter: 2016Q1

REPORT INFORMATION
  Report Type: Spontaneous
  Country: US (occurrence: US)
  Receive Date: 20160209
  Receipt Date: 20160226
  Transmission Date: 20160526
  Serious: Yes (Death, Hospitalization, Other)
  Sender: FDA-Public Use
  Company Number: US-ALEXION PHARMACEUTICALS INC-A201600661

PATIENT
  Age: 20 Year
  Sex: Female

DRUGS (1)
  1. SOLIRIS [Suspect]
     Active Substance: ECULIZUMAB
     Indication: HAEMOLYTIC URAEMIC SYNDROME
     Dosage: UNK, Q2W
     Route: 042

REACTIONS (10)
  - Condition aggravated [Unknown]
  - Clostridium difficile infection [Unknown]
  - Herpes simplex [Fatal]
  - Mucormycosis [Fatal]
  - Pyrexia [Unknown]
  - Pain [Unknown]
  - Abdominal pain [Unknown]
  - Haemolytic uraemic syndrome [Unknown]
  - Hepatic failure [Unknown]
  - Upper respiratory tract infection [Unknown]

NARRATIVE: CASE EVENT DATE: 201512
